FAERS Safety Report 9356683 (Version 1)
Quarter: 2013Q2

REPORT INFORMATION
  Report Type: Spontaneous
  Country: GB (occurrence: GB)
  Receive Date: 20130619
  Receipt Date: 20130619
  Transmission Date: 20140414
  Serious: Yes (Other)
  Sender: FDA-Public Use
  Company Number: GB-MYLANLABS-2013S1012855

PATIENT
  Age: 64 Year
  Sex: Male

DRUGS (1)
  1. EPROSARTAN [Suspect]
     Indication: HYPERTENSION
     Route: 048
     Dates: start: 2003, end: 2013

REACTIONS (2)
  - Chest pain [Unknown]
  - Muscle spasms [Unknown]
